FAERS Safety Report 9711516 (Version 2)
Quarter: 2014Q2

REPORT INFORMATION
  Report Type: Spontaneous
  Country: US (occurrence: US)
  Receive Date: 20131126
  Receipt Date: 20140510
  Transmission Date: 20141212
  Serious: No
  Sender: FDA-Public Use
  Company Number: US-BRISTOL-MYERS SQUIBB COMPANY-19065531

PATIENT
  Age: 52 Year
  Sex: Male
  Weight: 96.6 kg

DRUGS (10)
  1. BYDUREON [Suspect]
     Indication: TYPE 2 DIABETES MELLITUS
     Dosage: EXP: DEC16
     Route: 058
     Dates: start: 20130622
  2. METFORMIN [Suspect]
  3. GLIPIZIDE [Concomitant]
  4. PLAVIX [Concomitant]
     Route: 048
  5. ASPIRIN [Concomitant]
     Route: 048
  6. PROTONIX [Concomitant]
     Route: 048
  7. COZAAR [Concomitant]
     Route: 048
  8. CRESTOR [Concomitant]
     Route: 048
  9. TOPROL [Concomitant]
     Route: 048
  10. GLYBURIDE + METFORMIN HCL [Concomitant]
     Dosage: 1DF: 5/500 UNITS NOS
     Route: 048

REACTIONS (11)
  - Blood glucose increased [Not Recovered/Not Resolved]
  - Decreased appetite [Not Recovered/Not Resolved]
  - Injection site nodule [Recovering/Resolving]
  - Drug dose omission [Unknown]
  - Underdose [Unknown]
  - Product quality issue [Unknown]
  - Injection site haemorrhage [Not Recovered/Not Resolved]
  - Injection site pain [Not Recovered/Not Resolved]
  - Injection site pain [Not Recovered/Not Resolved]
  - Nausea [Recovering/Resolving]
  - Diarrhoea [Recovering/Resolving]
